FAERS Safety Report 17245829 (Version 1)
Quarter: 2020Q1

REPORT INFORMATION
  Report Type: Spontaneous
  Country: US (occurrence: US)
  Receive Date: 20200108
  Receipt Date: 20200108
  Transmission Date: 20200409
  Serious: Yes (Other)
  Sender: FDA-Public Use
  Company Number: US-SA-2020SA003964

PATIENT
  Age: 9 Year
  Sex: Female

DRUGS (1)
  1. DUPIXENT [Suspect]
     Active Substance: DUPILUMAB
     Indication: ASTHMA
     Dosage: 200 MG, QOW
     Route: 058
     Dates: start: 20190808

REACTIONS (5)
  - Respiratory tract infection [Unknown]
  - Seasonal allergy [Unknown]
  - Product use issue [Unknown]
  - Product use in unapproved indication [Unknown]
  - Asthma [Unknown]

NARRATIVE: CASE EVENT DATE: 20190808
